FAERS Safety Report 7617857-3 (Version None)
Quarter: 2011Q3

REPORT INFORMATION
  Report Type: 
  Country: None (occurrence: None)
  Receive Date: 20110718
  Receipt Date: 20110714
  Transmission Date: 20111222
  Serious: No
  Sender: FDA-Public Use
  Company Number: US-PFIZER INC-2011126623

PATIENT
  Sex: Female

DRUGS (1)
  1. IBUPROFEN (ADVIL) [Suspect]
     Indication: FALL
     Dosage: 200 MG, 2X/DAY
     Route: 048
     Dates: start: 20110501

REACTIONS (1)
  - ERYTHEMA [None]
